FAERS Safety Report 5431999-2 (Version None)
Quarter: 2007Q3

REPORT INFORMATION
  Report Type: 
  Country: None (occurrence: None)
  Receive Date: 20070731
  Receipt Date: 20070609
  Transmission Date: 20080115
  Serious: No
  Sender: FDA-Public Use
  Company Number: US200706002260

PATIENT
  Age: 59 Year
  Sex: Female

DRUGS (3)
  1. BYETTA [Suspect]
     Indication: TYPE 2 DIABETES MELLITUS
     Dosage: 5 UG, 2/D, SUBCUTANEOUS; 10 UG, 2/D,  SUBCUTANEOUS
     Route: 058
     Dates: start: 20070301, end: 20070607
  2. BYETTA [Suspect]
     Indication: TYPE 2 DIABETES MELLITUS
     Dosage: 5 UG, 2/D, SUBCUTANEOUS; 10 UG, 2/D,  SUBCUTANEOUS
     Route: 058
     Dates: start: 20070608
  3. LISINOPRIL [Suspect]

REACTIONS (3)
  - BLOOD GLUCOSE DECREASED [None]
  - FEELING HOT [None]
  - TREMOR [None]
